FAERS Safety Report 8398457-7 (Version None)
Quarter: 2012Q2

REPORT INFORMATION
  Report Type: 
  Country: None (occurrence: None)
  Receive Date: 20120323
  Receipt Date: 20111118
  Transmission Date: 20120825
  Serious: Yes (Hospitalization, Other)
  Sender: FDA-Public Use
  Company Number: 163-21880-11102775

PATIENT
  Age: 68 Year
  Sex: Male

DRUGS (5)
  1. REVLIMID [Suspect]
     Indication: MULTIPLE MYELOMA
     Dosage: 10 MG, 1 IN 1 D, PO
     Route: 048
     Dates: start: 20110816
  2. FLOMAX (UNKNOWN) [Concomitant]
  3. TOPROL-XL [Concomitant]
  4. SYNTHROID [Concomitant]
  5. PROTONIX (UNKNOWN) [Concomitant]

REACTIONS (9)
  - HEARING IMPAIRED [None]
  - CHOLECYSTITIS INFECTIVE [None]
  - THROMBOCYTOPENIA [None]
  - ANAEMIA [None]
  - CLOSTRIDIAL INFECTION [None]
  - VOMITING [None]
  - RED BLOOD CELL COUNT DECREASED [None]
  - FATIGUE [None]
  - CONDITION AGGRAVATED [None]
